FAERS Safety Report 10877763 (Version 1)
Quarter: 2015Q1

REPORT INFORMATION
  Report Type: Spontaneous
  Country: US (occurrence: None)
  Receive Date: 20150225
  Receipt Date: 20150225
  Transmission Date: 20150721
  Serious: No
  Sender: FDA-Public Use
  Company Number: None

PATIENT
  Age: 70 Year
  Sex: Female

DRUGS (11)
  1. REVLIMID [Suspect]
     Active Substance: LENALIDOMIDE
     Indication: PLASMA CELL MYELOMA
     Dosage: 2.5MG, DAILY FOR 21/28D, ORAL
     Route: 048
     Dates: start: 20140818, end: 20140821
  2. FAMOTIDINE. [Concomitant]
     Active Substance: FAMOTIDINE
  3. MVI [Concomitant]
     Active Substance: VITAMINS
  4. HALOPERIDOL DECANOATE. [Suspect]
     Active Substance: HALOPERIDOL DECANOATE
     Dosage: 1ML (5 VIALS X 1ML)
  5. DEXAMETHASONE. [Concomitant]
     Active Substance: DEXAMETHASONE
  6. ACYCLOVIR. [Concomitant]
     Active Substance: ACYCLOVIR
  7. ASA [Concomitant]
     Active Substance: ASPIRIN
  8. AMLODIPINE [Concomitant]
     Active Substance: AMLODIPINE BESYLATE
  9. CA/VIT D [Concomitant]
  10. METOPROLOL [Concomitant]
     Active Substance: METOPROLOL
  11. LORATADINE. [Concomitant]
     Active Substance: LORATADINE

REACTIONS (2)
  - Pruritus [None]
  - Rash [None]

NARRATIVE: CASE EVENT DATE: 20140825
